FAERS Safety Report 7263499-1 (Version None)
Quarter: 2011Q1

REPORT INFORMATION
  Report Type: 
  Country: None (occurrence: None)
  Receive Date: 20110130
  Receipt Date: 20101213
  Transmission Date: 20110831
  Serious: No
  Sender: FDA-Public Use
  Company Number: US-ABBOTT-10P-163-0691724-00

PATIENT
  Sex: Female
  Weight: 105.78 kg

DRUGS (7)
  1. AZATHIOPRINE [Concomitant]
     Indication: PRODUCT USED FOR UNKNOWN INDICATION
     Dosage: 2 TABLETS DAILY
     Route: 048
  2. HUMIRA [Suspect]
     Indication: COLITIS ULCERATIVE
  3. HUMIRA [Suspect]
     Indication: RHEUMATOID ARTHRITIS
     Dosage: 4 INJECTIONS, NO MED 6 WKS
     Route: 058
     Dates: start: 20101001
  4. HYDROXYCHLOROQUINE [Concomitant]
     Indication: PRODUCT USED FOR UNKNOWN INDICATION
     Route: 048
  5. UNKNOWN OTHER MEDICATIONS [Concomitant]
     Indication: PRODUCT USED FOR UNKNOWN INDICATION
  6. PREDNISONE [Concomitant]
     Indication: PRODUCT USED FOR UNKNOWN INDICATION
  7. INSULIN [Concomitant]
     Indication: PRODUCT USED FOR UNKNOWN INDICATION

REACTIONS (5)
  - DEPRESSION [None]
  - PAIN [None]
  - BLOOD GLUCOSE INCREASED [None]
  - RHEUMATOID ARTHRITIS [None]
  - MUSCULOSKELETAL STIFFNESS [None]
